FAERS Safety Report 22046489 (Version 1)
Quarter: 2023Q1

REPORT INFORMATION
  Report Type: Spontaneous
  Country: JP (occurrence: JP)
  Receive Date: 20230228
  Receipt Date: 20230228
  Transmission Date: 20230417
  Serious: Yes (Hospitalization)
  Sender: FDA-Public Use
  Company Number: JP-BEH-2023155628

PATIENT
  Age: 50 Year
  Sex: Male
  Weight: 56 kg

DRUGS (1)
  1. HIZENTRA [Suspect]
     Active Substance: HUMAN IMMUNOGLOBULIN G
     Indication: Chronic inflammatory demyelinating polyradiculoneuropathy
     Dosage: 20 GRAM/100ML, QW
     Route: 058
     Dates: start: 20220809

REACTIONS (1)
  - Hypoaesthesia [Not Recovered/Not Resolved]
